FAERS Safety Report 9297201 (Version 1)
Quarter: 2013Q2

REPORT INFORMATION
  Report Type: Spontaneous
  Country: US (occurrence: US)
  Receive Date: 20130520
  Receipt Date: 20130520
  Transmission Date: 20140414
  Serious: Yes (Hospitalization)
  Sender: FDA-Public Use
  Company Number: US-BIOGENIDEC-2013BI043217

PATIENT
  Age: 54 Year
  Sex: Female

DRUGS (2)
  1. AVONEX [Suspect]
     Indication: MULTIPLE SCLEROSIS
     Route: 030
  2. AVONEX [Suspect]
     Indication: MULTIPLE SCLEROSIS
     Route: 030

REACTIONS (6)
  - Coma [Recovered/Resolved]
  - Convulsion [Recovered/Resolved]
  - Upper respiratory tract infection [Unknown]
  - Motor dysfunction [Not Recovered/Not Resolved]
  - Sensory disturbance [Unknown]
  - Multiple sclerosis relapse [Not Recovered/Not Resolved]
